FAERS Safety Report 7349539-X (Version None)
Quarter: 2011Q1

REPORT INFORMATION
  Report Type: 
  Country: None (occurrence: None)
  Receive Date: 20110304
  Receipt Date: 20100507
  Transmission Date: 20110831
  Serious: Yes (Other)
  Sender: FDA-Public Use
  Company Number: JP-20100015

PATIENT
  Age: 77 Year
  Sex: Female

DRUGS (6)
  1. SOSEGON (PENTAZOCINE HYDROCHLORIDE) (PENTAZOCINE HYDROCHLORIDE) [Concomitant]
  2. ATARAX-P (HYDROXYZINE PAMOATE) (HYDROXYZINE PAMOATE) [Concomitant]
  3. LIPIODOL (ETHIODIZED OIL) [Suspect]
     Indication: THERAPEUTIC EMBOLISATION
     Dosage: 5 ML (5 ML, 1 IN 1 TOTAL)
     Route: 013
     Dates: start: 20100419, end: 20100419
  4. PIRETAZOL (VEFMETAZOLE HYDROCHLORIDE) (CEFMETAZOLE HYDROCHLORIDE) [Concomitant]
  5. IOMERON (IOMEPROL) [Suspect]
     Indication: THERAPEUTIC EMBOLISATION
     Dosage: 3 ML (3 ML, 1 IN 1 TOTAL)
     Route: 013
     Dates: start: 20100419, end: 20100419
  6. EPIRUBICIN HYDROCHLORIDE [Suspect]
     Indication: THERAPEUTIC EMBOLISATION
     Dosage: 30 MG (30 MG, 1 IN 1 TOTAL)
     Route: 013
     Dates: start: 20100419, end: 20100419

REACTIONS (7)
  - CHEST DISCOMFORT [None]
  - DYSPNOEA [None]
  - OFF LABEL USE [None]
  - ABDOMINAL DISCOMFORT [None]
  - MALAISE [None]
  - BRADYCARDIA [None]
  - ANAPHYLACTIC SHOCK [None]
